FAERS Safety Report 5127014-0 (Version None)
Quarter: 2006Q4

REPORT INFORMATION
  Report Type: 
  Country: None (occurrence: None)
  Receive Date: 20061013
  Receipt Date: 20060928
  Transmission Date: 20070319
  Serious: Yes (Disabling)
  Sender: FDA-Public Use
  Company Number: FR-GLAXOSMITHKLINE-B0440332A

PATIENT
  Age: 46 Year
  Sex: Male
  Weight: 60 kg

DRUGS (9)
  1. TRIZIVIR [Suspect]
     Indication: HIV INFECTION
     Dosage: 1TAB TWICE PER DAY
     Route: 048
     Dates: start: 20050921
  2. COMBIVIR [Suspect]
     Indication: HIV INFECTION
     Route: 048
     Dates: start: 20050131, end: 20050921
  3. NORVIR [Suspect]
     Indication: HIV INFECTION
     Dosage: 100MG TWICE PER DAY
     Route: 048
     Dates: start: 20060111
  4. KALETRA [Suspect]
     Indication: HIV INFECTION
     Dosage: 4TAB TWICE PER DAY
     Route: 048
     Dates: start: 20050131
  5. INVIRASE [Suspect]
     Indication: HIV INFECTION
     Route: 048
     Dates: start: 19981230, end: 20041025
  6. ZERIT [Suspect]
     Indication: HIV INFECTION
     Route: 048
     Dates: start: 19981230, end: 20041025
  7. ZELITREX [Concomitant]
     Dosage: 500MG PER DAY
     Route: 048
  8. SEROPLEX [Concomitant]
     Dosage: 5MG PER DAY
     Route: 048
  9. SERESTA [Concomitant]
     Dosage: 10MG TWICE PER DAY
     Route: 048

REACTIONS (1)
  - CARDIAC DISORDER [None]
